FAERS Safety Report 7319175-X (Version None)
Quarter: 2011Q1

REPORT INFORMATION
  Report Type: 
  Country: None (occurrence: None)
  Receive Date: 20110223
  Receipt Date: 20110223
  Transmission Date: 20110831
  Serious: No
  Sender: FDA-Public Use
  Company Number: None

PATIENT
  Age: 55 Year
  Sex: Female
  Weight: 54.4316 kg

DRUGS (1)
  1. RECLAST [Suspect]
     Indication: OSTEOPOROSIS
     Dosage: ANNUAL DOSE ONE TIME
     Dates: start: 20110117, end: 20110117

REACTIONS (11)
  - PAIN IN JAW [None]
  - IMPAIRED WORK ABILITY [None]
  - ASTHENIA [None]
  - ARTHRALGIA [None]
  - GAIT DISTURBANCE [None]
  - SUICIDAL IDEATION [None]
  - INSOMNIA [None]
  - RADICULAR PAIN [None]
  - WEIGHT INCREASED [None]
  - DEPRESSION [None]
  - DECREASED ACTIVITY [None]
